FAERS Safety Report 8226971-3 (Version None)
Quarter: 2012Q1

REPORT INFORMATION
  Report Type: 
  Country: None (occurrence: None)
  Receive Date: 20120322
  Receipt Date: 20120314
  Transmission Date: 20120608
  Serious: Yes (Other)
  Sender: FDA-Public Use
  Company Number: US-JNJFOC-20120307921

PATIENT
  Sex: Female
  Weight: 81.65 kg

DRUGS (5)
  1. SIMPONI [Suspect]
     Route: 058
     Dates: start: 20100301, end: 20100301
  2. SIMPONI [Suspect]
     Indication: ANKYLOSING SPONDYLITIS
     Route: 058
     Dates: start: 20120303
  3. SINGULAIR [Concomitant]
     Indication: ASTHMA
  4. METHOTREXATE [Concomitant]
     Indication: ANKYLOSING SPONDYLITIS
     Route: 048
  5. INHALER NOS [Concomitant]
     Route: 055
     Dates: start: 20100101

REACTIONS (5)
  - WHEEZING [None]
  - ASTHMA [None]
  - CHEST DISCOMFORT [None]
  - PLEURISY [None]
  - PNEUMONIA [None]
